FAERS Safety Report 7580384-6 (Version None)
Quarter: 2011Q2

REPORT INFORMATION
  Report Type: 
  Country: None (occurrence: None)
  Receive Date: 20110629
  Receipt Date: 20110615
  Transmission Date: 20111010
  Serious: Yes (Other)
  Sender: FDA-Public Use
  Company Number: US-ROCHE-784186

PATIENT
  Age: 55 Year
  Sex: Female

DRUGS (7)
  1. TRASTUZUMAB [Suspect]
     Indication: BREAST CANCER
     Dosage: VARIABLE DOSE
     Route: 042
     Dates: start: 20100409
  2. PACLITAXEL [Suspect]
     Indication: BREAST CANCER
     Route: 042
     Dates: start: 20100409
  3. LAPATINIB [Suspect]
     Indication: BREAST CANCER
     Route: 048
     Dates: start: 20100409
  4. ANASTRAZOLE [Suspect]
     Dosage: INTERRUPTED
     Route: 065
  5. DOCETAXEL [Suspect]
     Indication: BREAST CANCER
     Route: 042
     Dates: start: 20100409
  6. LAPATINIB [Suspect]
     Route: 048
  7. TOPICAL CREAM [Concomitant]
     Dosage: TOPICAL AGENT TO TREAT YEAST INFECTION

REACTIONS (7)
  - NAUSEA [None]
  - HYPOKALAEMIA [None]
  - EXFOLIATIVE RASH [None]
  - SYNCOPE [None]
  - DEHYDRATION [None]
  - MYALGIA [None]
  - DEPRESSION [None]
